FAERS Safety Report 5195862-7 (Version None)
Quarter: 2007Q1

REPORT INFORMATION
  Report Type: 
  Country: None (occurrence: None)
  Receive Date: 20070102
  Receipt Date: 20061222
  Transmission Date: 20070707
  Serious: Yes (Other)
  Sender: FDA-Public Use
  Company Number: US-GLAXOSMITHKLINE-A0632583A

PATIENT
  Age: 66 Year
  Sex: Male

DRUGS (7)
  1. ADVAIR DISKUS 100/50 [Suspect]
     Indication: CHRONIC OBSTRUCTIVE PULMONARY DISEASE
     Dosage: 1PUFF TWICE PER DAY
     Route: 055
     Dates: start: 20051101, end: 20061215
  2. NEBULIZER [Concomitant]
  3. SINGULAIR [Concomitant]
  4. ALBUTEROL [Concomitant]
  5. IBUPROFEN [Concomitant]
  6. PULMICORT [Concomitant]
  7. PREDNISONE [Concomitant]

REACTIONS (7)
  - BLOOD PRESSURE INCREASED [None]
  - COLONIC POLYP [None]
  - DRUG INEFFECTIVE [None]
  - DYSPNOEA [None]
  - HAEMORRHAGE [None]
  - MALAISE [None]
  - RECTAL HAEMORRHAGE [None]
